FAERS Safety Report 6362742-0 (Version None)
Quarter: 2009Q3

REPORT INFORMATION
  Report Type: 
  Country: None (occurrence: None)
  Receive Date: 20090919
  Receipt Date: 20090608
  Transmission Date: 20100115
  Serious: Yes (Hospitalization)
  Sender: FDA-Public Use
  Company Number: US-ABBOTT-09P-163-0578703-00

PATIENT
  Sex: Female
  Weight: 68.1 kg

DRUGS (3)
  1. HUMIRA [Suspect]
     Indication: CROHN'S DISEASE
     Route: 058
     Dates: start: 20081001, end: 20081201
  2. HUMIRA [Suspect]
     Dates: start: 20090301, end: 20090605
  3. HUMIRA [Suspect]
     Dates: start: 20090605

REACTIONS (3)
  - DIARRHOEA [None]
  - IMPAIRED HEALING [None]
  - RED BLOOD CELL SEDIMENTATION RATE INCREASED [None]
